FAERS Safety Report 21622008 (Version 1)
Quarter: 2022Q4

REPORT INFORMATION
  Report Type: Spontaneous
  Country: US (occurrence: None)
  Receive Date: 20221119
  Receipt Date: 20221119
  Transmission Date: 20230112
  Serious: Yes (Other)
  Sender: FDA-Public Use
  Company Number: None

PATIENT
  Sex: Female
  Weight: 67.5 kg

DRUGS (9)
  1. BUPROPION HYDROCHLORIDE [Suspect]
     Active Substance: BUPROPION HYDROCHLORIDE
     Indication: Borderline personality disorder
     Dosage: OTHER QUANTITY : 1 TABLET(S);?
     Route: 048
     Dates: start: 20220906, end: 20221118
  2. TOPAMAX [Concomitant]
     Active Substance: TOPIRAMATE
  3. MINOCYCLINE [Concomitant]
     Active Substance: MINOCYCLINE HYDROCHLORIDE
  4. LORATADINE [Concomitant]
     Active Substance: LORATADINE
  5. CLONAZEPAM [Concomitant]
     Active Substance: CLONAZEPAM
  6. Advocare fiber [Concomitant]
  7. Advocare probiotics [Concomitant]
  8. Advocare aloe ease [Concomitant]
  9. Advocare Slim Members mark ibuprofen [Concomitant]

REACTIONS (8)
  - Abnormal faeces [None]
  - Mental impairment [None]
  - Drug ineffective [None]
  - Product dose omission in error [None]
  - Depressed mood [None]
  - Headache [None]
  - Borderline personality disorder [None]
  - Suicide attempt [None]
